FAERS Safety Report 26127196 (Version 2)
Quarter: 2025Q4

REPORT INFORMATION
  Report Type: Spontaneous
  Country: EU (occurrence: EU)
  Receive Date: 20251205
  Receipt Date: 20251230
  Transmission Date: 20260118
  Serious: Yes (Life-Threatening, Hospitalization)
  Sender: MYLAN
  Company Number: None

PATIENT
  Age: 49 Year
  Sex: Female

DRUGS (4)
  1. NEURONTIN [Suspect]
     Active Substance: GABAPENTIN
     Indication: Neuralgia
     Dosage: 900 MILLIGRAM, QD, DOSAGE GRADUALLY INCREASED TO 900 MG
     Route: 061
     Dates: start: 20240105
  2. NEURONTIN [Suspect]
     Active Substance: GABAPENTIN
     Dosage: 1200 MILLIGRAM, QD, THE DOSE WAS INCREASED TO 1200 MG/DAY IN JANUARY 2025.
     Route: 061
     Dates: start: 202501, end: 2025
  3. NEURONTIN [Suspect]
     Active Substance: GABAPENTIN
     Indication: Neuralgia
     Dosage: 1500 MILLIGRAM, THE DOSE WAS INCREASED TO 1200 MG/DAY IN JANUARY 2025
  4. NEURONTIN [Suspect]
     Active Substance: GABAPENTIN
     Dosage: 1800 MILLIGRAM,THE DOSE WAS INCREASED TO 1200 MG/DAY IN JANUARY 2025

REACTIONS (11)
  - Suicidal ideation [Recovering/Resolving]
  - Psychiatric symptom [Recovering/Resolving]
  - Neurological symptom [Recovered/Resolved]
  - Impulse-control disorder [Recovering/Resolving]
  - Irritability [Recovering/Resolving]
  - Memory impairment [Recovering/Resolving]
  - Obsessive thoughts [Recovering/Resolving]
  - Depression [Recovering/Resolving]
  - Agitation [Recovering/Resolving]
  - Dizziness [Recovering/Resolving]
  - Amnesia [Recovering/Resolving]

NARRATIVE: CASE EVENT DATE: 20240301
